FAERS Safety Report 8699684 (Version 2)
Quarter: 2012Q4

REPORT INFORMATION
  Report Type: 
  Country: US (occurrence: US)
  Receive Date: 20120802
  Receipt Date: 20120920
  Transmission Date: 20130627
  Serious: Yes (Hospitalization)
  Sender: FDA-Public Use
  Company Number: US-GLAXOSMITHKLINE-A0899185A

PATIENT
  Age: 49 Year
  Sex: Male
  Weight: 102.3 kg

DRUGS (1)
  1. AVANDIA [Suspect]
     Indication: DIABETES MELLITUS
     Dosage: 10MG Twice per day
     Route: 048

REACTIONS (5)
  - Carotid artery occlusion [Not Recovered/Not Resolved]
  - Atrioventricular block [Unknown]
  - Dementia [Unknown]
  - Speech disorder [Unknown]
  - Arteriosclerosis [Unknown]
